FAERS Safety Report 7924813-4 (Version None)
Quarter: 2011Q4

REPORT INFORMATION
  Report Type: 
  Country: None (occurrence: None)
  Receive Date: 20111118
  Receipt Date: 20110328
  Transmission Date: 20120403
  Serious: No
  Sender: FDA-Public Use
  Company Number: US-AMGEN-USASP2011016630

PATIENT
  Age: 47 Year
  Sex: Female

DRUGS (12)
  1. ENBREL [Suspect]
     Indication: PRODUCT USED FOR UNKNOWN INDICATION
     Dosage: 50 MG, QWK
  2. DAYPRO ALTA [Concomitant]
     Dosage: 600 MG, UNK
  3. GABAPENTIN [Concomitant]
     Dosage: 100 MG, UNK
  4. CLONAZEPAM [Concomitant]
     Dosage: 1 MG, UNK
  5. LEVAQUIN [Concomitant]
     Dosage: 500 MG, UNK
  6. HYDROXYCHLOROQUINE SULFATE [Concomitant]
     Dosage: 200 MG, UNK
  7. FOLIC ACID [Concomitant]
     Dosage: 1 MG, UNK
  8. SULFASALAZINE [Concomitant]
     Dosage: 500 MG, UNK
  9. LEUCOVORIN CALCIUM [Concomitant]
     Dosage: 5 MG, UNK
  10. PROTONIX [Concomitant]
     Dosage: 20 MG, UNK
  11. ALLEGRA [Concomitant]
     Dosage: 30 MG, UNK
  12. LORTAB [Concomitant]
     Dosage: 5 MG, UNK

REACTIONS (3)
  - CRYING [None]
  - SINUSITIS [None]
  - INJECTION SITE PAIN [None]
